FAERS Safety Report 4817930-9 (Version None)
Quarter: 2005Q4

REPORT INFORMATION
  Report Type: 
  Country: None (occurrence: None)
  Receive Date: 20051102
  Receipt Date: 20051020
  Transmission Date: 20060501
  Serious: Yes (Hospitalization)
  Sender: FDA-Public Use
  Company Number: ES-GILEAD-2005-0008840

PATIENT
  Sex: Female
  Weight: 39 kg

DRUGS (3)
  1. VIREAD [Suspect]
     Indication: HIV INFECTION
  2. ZIAGEN [Concomitant]
     Indication: HIV INFECTION
  3. VIRACEPT [Concomitant]
     Indication: HIV INFECTION

REACTIONS (2)
  - HYPERTENSION [None]
  - LEUKOPENIA [None]
